FAERS Safety Report 4423486-5 (Version None)
Quarter: 2004Q3

REPORT INFORMATION
  Report Type: 
  Country: None (occurrence: None)
  Receive Date: 20040806
  Receipt Date: 20040724
  Transmission Date: 20050211
  Serious: Yes (Death, Other)
  Sender: FDA-Public Use
  Company Number: CN-2004-029315

PATIENT
  Age: 56 Year
  Sex: Male
  Weight: 65 kg

DRUGS (3)
  1. ULTRAVIST 300 [Suspect]
     Indication: COMPUTERISED TOMOGRAM
     Dosage: SEE IMAGE
     Route: 042
     Dates: start: 20040723, end: 20040723
  2. ULTRAVIST 300 [Suspect]
     Indication: COMPUTERISED TOMOGRAM
     Dosage: SEE IMAGE
     Route: 042
     Dates: start: 20040723, end: 20040723
  3. DEXAMETHASONE [Concomitant]

REACTIONS (10)
  - AGITATION [None]
  - CARDIAC ARREST [None]
  - CONVULSION [None]
  - CYANOSIS [None]
  - DYSPNOEA [None]
  - FEAR [None]
  - FLUSHING [None]
  - HYPERHIDROSIS [None]
  - PULSE PRESSURE DECREASED [None]
  - TACHYCARDIA [None]
